FAERS Safety Report 7879242-9 (Version None)
Quarter: 2011Q4

REPORT INFORMATION
  Report Type: 
  Country: None (occurrence: None)
  Receive Date: 20111101
  Receipt Date: 20111026
  Transmission Date: 20120403
  Serious: Yes (Other)
  Sender: FDA-Public Use
  Company Number: US-AMGEN-USASP2011055542

PATIENT
  Age: 3 Year
  Sex: Male

DRUGS (9)
  1. CALCITRIOL [Concomitant]
  2. CALCIUM CARBONATE [Concomitant]
  3. EPOGEN [Suspect]
     Indication: DIALYSIS
     Dosage: 10000 IU, UNK
     Dates: start: 20111001
  4. CLONIDINE [Concomitant]
  5. FERROUS SULFATE TAB [Concomitant]
  6. NEPHROVITE [Concomitant]
  7. PRILOSEC [Concomitant]
  8. ENALAPRIL [Concomitant]
  9. NORVASC [Concomitant]

REACTIONS (4)
  - RETICULOCYTE COUNT ABNORMAL [None]
  - HAEMATOCRIT DECREASED [None]
  - HAEMOGLOBIN DECREASED [None]
  - BLOOD ERYTHROPOIETIN DECREASED [None]
